FAERS Safety Report 17514763 (Version 1)
Quarter: 2020Q1

REPORT INFORMATION
  Report Type: Spontaneous
  Country: US (occurrence: US)
  Receive Date: 20200309
  Receipt Date: 20200309
  Transmission Date: 20200409
  Serious: No
  Sender: FDA-Public Use
  Company Number: US-009507513-2003USA000502

PATIENT
  Age: 39 Year
  Sex: Female

DRUGS (2)
  1. ASMANEX [Suspect]
     Active Substance: MOMETASONE FUROATE
     Indication: ASTHMA
     Dosage: 2 INHALATIONS IN THE MORNING
     Route: 055
     Dates: start: 2018
  2. ASMANEX [Suspect]
     Active Substance: MOMETASONE FUROATE
     Dosage: 2 INHALATIONS IN THE MORNING
     Route: 055
     Dates: start: 202001

REACTIONS (3)
  - Product quality issue [Unknown]
  - Poor quality device used [Unknown]
  - No adverse event [Unknown]

NARRATIVE: CASE EVENT DATE: 202001
